FAERS Safety Report 16078319 (Version 1)
Quarter: 2019Q2

REPORT INFORMATION
  Report Type: Spontaneous
  Country: US (occurrence: US)
  Receive Date: 20190315
  Receipt Date: 20190315
  Transmission Date: 20190711
  Serious: Yes (Other)
  Sender: FDA-Public Use
  Company Number: None

PATIENT
  Age: 58 Year
  Sex: Female
  Weight: 76.95 kg

DRUGS (1)
  1. MAGNESIUM SULFATE. [Suspect]
     Active Substance: MAGNESIUM SULFATE
     Indication: MIGRAINE
     Route: 041
     Dates: start: 20180928, end: 20190308

REACTIONS (5)
  - Infusion related reaction [None]
  - Urticaria [None]
  - Pruritus [None]
  - Anxiety [None]
  - Restlessness [None]

NARRATIVE: CASE EVENT DATE: 20190308
